FAERS Safety Report 17576427 (Version 1)
Quarter: 2020Q1

REPORT INFORMATION
  Report Type: Other
  Country: US (occurrence: US)
  Receive Date: 20200324
  Receipt Date: 20200324
  Transmission Date: 20200409
  Serious: No
  Sender: FDA-Public Use
  Company Number: US-ACORDA-ACO_163587_2020

PATIENT
  Sex: Female

DRUGS (2)
  1. INBRIJA [Suspect]
     Active Substance: LEVODOPA
     Indication: ON AND OFF PHENOMENON
  2. INBRIJA [Suspect]
     Active Substance: LEVODOPA
     Indication: PARKINSON^S DISEASE
     Dosage: 42 MILLIGRAM, 2 CAPSULES, PRN. NO TO EXCEED 5 DOSES A DAY.
     Dates: start: 2020

REACTIONS (8)
  - Dry skin [Unknown]
  - Condition aggravated [Unknown]
  - Muscle spasms [Unknown]
  - Dystonia [Unknown]
  - Nail bed bleeding [Unknown]
  - Speech disorder [Unknown]
  - Dehydration [Unknown]
  - Headache [Unknown]
